FAERS Safety Report 7651462-8 (Version None)
Quarter: 2011Q3

REPORT INFORMATION
  Report Type: 
  Country: None (occurrence: None)
  Receive Date: 20110802
  Receipt Date: 20110727
  Transmission Date: 20111222
  Serious: Yes (Other)
  Sender: FDA-Public Use
  Company Number: PHHY2011US01196

PATIENT
  Sex: Female
  Weight: 114.29 kg

DRUGS (10)
  1. EXTAVIA [Suspect]
     Indication: MULTIPLE SCLEROSIS
     Dosage: 0.25 MG, QOD
     Route: 058
     Dates: start: 20101122
  2. EXTAVIA [Suspect]
     Dosage: 0.25 MG, QOD
     Route: 058
     Dates: start: 20110101
  3. LEVOXYL [Concomitant]
     Dosage: UNK UKN, UNK
     Route: 048
  4. FUROSEMIDE [Concomitant]
     Dosage: UNK UKN, UNK
  5. BACLOFEN [Concomitant]
     Dosage: UNK UKN, UNK
     Route: 048
  6. DIURETICS [Concomitant]
     Indication: HYPERTENSION
  7. SERTRALINE HYDROCHLORIDE [Concomitant]
  8. TYLENOL-500 [Concomitant]
     Dosage: UNK UKN, UNK
  9. EXTAVIA [Suspect]
     Dosage: 0.062 MG, QOD
     Route: 058
     Dates: start: 20101231
  10. ALBUTEROL SULFATE AUTOHALER [Concomitant]
     Dosage: UNK UKN, UNK

REACTIONS (5)
  - WEIGHT INCREASED [None]
  - ABDOMINAL DISCOMFORT [None]
  - DEPRESSION [None]
  - INJECTION SITE ERYTHEMA [None]
  - DRY MOUTH [None]
